FAERS Safety Report 9442705 (Version 1)
Quarter: 2013Q3

REPORT INFORMATION
  Report Type: Spontaneous
  Country: DE (occurrence: DE)
  Receive Date: 20130806
  Receipt Date: 20130806
  Transmission Date: 20140515
  Serious: Yes (Other)
  Sender: FDA-Public Use
  Company Number: DE-ASTRAZENECA-2013SE57855

PATIENT
  Age: 71 Year
  Sex: Female
  Weight: 62 kg

DRUGS (1)
  1. BRILIQUE [Suspect]
     Indication: STENT PLACEMENT
     Route: 048

REACTIONS (3)
  - Visual impairment [Not Recovered/Not Resolved]
  - Retinal haemorrhage [Not Recovered/Not Resolved]
  - Vitreous haemorrhage [Not Recovered/Not Resolved]
